FAERS Safety Report 26135669 (Version 1)
Quarter: 2025Q4

REPORT INFORMATION
  Report Type: Spontaneous
  Country: US (occurrence: None)
  Receive Date: 20251209
  Receipt Date: 20251209
  Transmission Date: 20260118
  Serious: No
  Sender: FDA-CTU
  Company Number: None

PATIENT

DRUGS (1)
  1. JASCAYD [Suspect]
     Active Substance: NERANDOMILAST

REACTIONS (3)
  - Product storage error [None]
  - Product container issue [None]
  - Product physical issue [None]
